FAERS Safety Report 17949076 (Version 1)
Quarter: 2020Q2

REPORT INFORMATION
  Report Type: Spontaneous
  Country: US (occurrence: US)
  Receive Date: 20200625
  Receipt Date: 20200625
  Transmission Date: 20200714
  Serious: No
  Sender: FDA-Public Use
  Company Number: US-ROCHE-2390863

PATIENT
  Age: 72 Year
  Sex: Male
  Weight: 82.63 kg

DRUGS (2)
  1. KLONOPIN [Suspect]
     Active Substance: CLONAZEPAM
     Indication: NERVOUS SYSTEM DISORDER
     Dosage: ONGOING NO
     Route: 048
  2. KLONOPIN [Suspect]
     Active Substance: CLONAZEPAM
     Route: 048

REACTIONS (6)
  - Drug ineffective [Unknown]
  - Wrong technique in product usage process [Unknown]
  - Agitation [Unknown]
  - Insomnia [Unknown]
  - Product taste abnormal [Unknown]
  - Hypersensitivity [Unknown]

NARRATIVE: CASE EVENT DATE: 20190820
